FAERS Safety Report 23886575 (Version 1)
Quarter: 2024Q2

REPORT INFORMATION
  Report Type: Spontaneous
  Country: US (occurrence: US)
  Receive Date: 20240522
  Receipt Date: 20240522
  Transmission Date: 20240715
  Serious: No
  Sender: FDA-Public Use
  Company Number: US-TPU-TPU-2024-00175

PATIENT
  Sex: Male

DRUGS (1)
  1. LIDOCAINE [Suspect]
     Active Substance: LIDOCAINE
     Indication: Diabetic neuropathy

REACTIONS (2)
  - Incorrect dose administered [Unknown]
  - Drug ineffective for unapproved indication [Unknown]
